FAERS Safety Report 21109856 (Version 8)
Quarter: 2023Q1

REPORT INFORMATION
  Report Type: Report from Study
  Country: US (occurrence: US)
  Receive Date: 20220721
  Receipt Date: 20230331
  Transmission Date: 20230418
  Serious: Yes (Hospitalization)
  Sender: FDA-Public Use
  Company Number: US-TAKEDA-2021TUS068318

PATIENT
  Sex: Female
  Weight: 54.875 kg

DRUGS (18)
  1. HUMAN IMMUNOGLOBULIN G [Suspect]
     Active Substance: HUMAN IMMUNOGLOBULIN G
     Indication: Immunodeficiency common variable
     Dosage: UNK, 1/WEEK
     Route: 058
  2. HUMAN IMMUNOGLOBULIN G [Suspect]
     Active Substance: HUMAN IMMUNOGLOBULIN G
     Indication: Selective IgG subclass deficiency
     Dosage: 12 GRAM, Q2WEEKS
     Route: 058
     Dates: start: 20210923
  3. DIPHENHYDRAMINE [Concomitant]
     Active Substance: DIPHENHYDRAMINE
  4. EPINEPHRINE [Concomitant]
     Active Substance: EPINEPHRINE
  5. RESTASIS [Concomitant]
     Active Substance: CYCLOSPORINE
  6. RETIN-A [Concomitant]
     Active Substance: TRETINOIN
  7. BREO ELLIPTA [Concomitant]
     Active Substance: FLUTICASONE FUROATE\VILANTEROL TRIFENATATE
  8. LATISSE [Concomitant]
     Active Substance: BIMATOPROST
     Indication: Product used for unknown indication
  9. ESTRACE [Concomitant]
     Active Substance: ESTRADIOL
  10. FML [Concomitant]
     Active Substance: FLUOROMETHOLONE
     Route: 065
  11. Lmx [Concomitant]
  12. ACETAMINOPHEN [Concomitant]
     Active Substance: ACETAMINOPHEN
  13. BACTRIM DS [Concomitant]
     Active Substance: SULFAMETHOXAZOLE\TRIMETHOPRIM
  14. MONTELUKAST SODIUM [Concomitant]
     Active Substance: MONTELUKAST SODIUM
  15. MOBIC [Concomitant]
     Active Substance: MELOXICAM
  16. TESSALON [Concomitant]
     Active Substance: BENZONATATE
  17. LIDOCAINE [Concomitant]
     Active Substance: LIDOCAINE
  18. LIDOCAINE\PRILOCAINE [Concomitant]
     Active Substance: LIDOCAINE\PRILOCAINE

REACTIONS (9)
  - Cardiac pacemaker insertion [Unknown]
  - Bacterial infection [Unknown]
  - Nasopharyngitis [Recovered/Resolved]
  - Sinusitis [Unknown]
  - Pacemaker generated arrhythmia [Unknown]
  - Tachycardia [Unknown]
  - Injection site pruritus [Recovered/Resolved]
  - Cough [Unknown]
  - Injection site pain [Unknown]
